FAERS Safety Report 9536869 (Version 1)
Quarter: 2013Q4

REPORT INFORMATION
  Report Type: Spontaneous
  Country: US (occurrence: None)
  Receive Date: 20130918
  Receipt Date: 20130918
  Transmission Date: 20140711
  Serious: Yes (Hospitalization)
  Sender: FDA-Public Use
  Company Number: None

PATIENT
  Age: 70 Year
  Sex: Male
  Weight: 100.7 kg

DRUGS (6)
  1. EVEROLIMUS [Suspect]
     Indication: THYROID CANCER
     Dosage: 10MG QD  P.O
     Route: 048
     Dates: start: 20130403, end: 20130821
  2. SYNTHROID [Concomitant]
  3. ZESTORETIC [Concomitant]
  4. ALLOPURINOL [Concomitant]
  5. ASPIRIN [Concomitant]
  6. LOVASTATIN [Concomitant]

REACTIONS (1)
  - Pneumonia [None]
